FAERS Safety Report 23422354 (Version 2)
Quarter: 2024Q1

REPORT INFORMATION
  Report Type: Spontaneous
  Country: FR (occurrence: None)
  Receive Date: 20240119
  Receipt Date: 20240124
  Transmission Date: 20240410
  Serious: Yes (Hospitalization)
  Sender: FDA-Public Use
  Company Number: 2024A011491

PATIENT
  Age: 30681 Day
  Sex: Male

DRUGS (1)
  1. TICAGRELOR [Suspect]
     Active Substance: TICAGRELOR
     Indication: Product used for unknown indication
     Route: 048
     Dates: start: 202312

REACTIONS (7)
  - Blood potassium decreased [Recovered/Resolved]
  - Syncope [Recovered/Resolved]
  - Anxiety [Unknown]
  - Insomnia [Unknown]
  - Influenza [Unknown]
  - Blood urine present [Recovered/Resolved]
  - Dyspnoea [Not Recovered/Not Resolved]

NARRATIVE: CASE EVENT DATE: 20231201
